FAERS Safety Report 24362122 (Version 2)
Quarter: 2024Q4

REPORT INFORMATION
  Report Type: Spontaneous
  Country: JP (occurrence: JP)
  Receive Date: 20240925
  Receipt Date: 20241007
  Transmission Date: 20250114
  Serious: Yes (Other)
  Sender: TEVA
  Company Number: JP-TEVA-VS-3246416

PATIENT
  Age: 75 Year
  Sex: Female

DRUGS (2)
  1. ALPRAZOLAM [Suspect]
     Active Substance: ALPRAZOLAM
     Indication: Product used for unknown indication
     Dosage: TIME INTERVAL: 0.33333333 DAYS: 0.4MG.TABLETS
     Route: 048
  2. ALPRAZOLAM [Suspect]
     Active Substance: ALPRAZOLAM
     Indication: Product used for unknown indication
     Dosage: 0.4 MG OF CONSTAN TABLETS PER DAY
     Route: 048

REACTIONS (2)
  - Angle closure glaucoma [Unknown]
  - Product use issue [Unknown]
